FAERS Safety Report 8281019-X (Version None)
Quarter: 2012Q2

REPORT INFORMATION
  Report Type: 
  Country: None (occurrence: None)
  Receive Date: 20120412
  Receipt Date: 20120326
  Transmission Date: 20120825
  Serious: Yes (Death, Hospitalization)
  Sender: FDA-Public Use
  Company Number: US-BAXTER-2012BH004952

PATIENT
  Sex: Female

DRUGS (2)
  1. DIANEAL [Suspect]
  2. DIANEAL [Suspect]
     Indication: PERITONEAL DIALYSIS
     Route: 033
     Dates: start: 20110912, end: 20120107

REACTIONS (4)
  - CARDIAC FAILURE CONGESTIVE [None]
  - GOODPASTURE'S SYNDROME [None]
  - PAIN [None]
  - RENAL FAILURE [None]
